FAERS Safety Report 7024155-8 (Version None)
Quarter: 2010Q4

REPORT INFORMATION
  Report Type: 
  Country: None (occurrence: None)
  Receive Date: 20101001
  Receipt Date: 20100920
  Transmission Date: 20110411
  Serious: Yes (Other)
  Sender: FDA-Public Use
  Company Number: US-ROCHE-728727

PATIENT

DRUGS (5)
  1. DACLIZUMAB [Suspect]
     Indication: TYPE 1 DIABETES MELLITUS
     Dosage: TRIAL STOPPED
     Route: 042
  2. MYCOPHENOLATE MOFETIL [Suspect]
     Dosage: TRIAL DISCONTINUED
     Route: 048
  3. EFALIZUMAB [Suspect]
     Indication: IMMUNOSUPPRESSION
     Dosage: DRUG WITHDRAWN AND TRIAL DISCONTINUED
     Route: 058
  4. SIROLIMUS [Suspect]
     Indication: IMMUNOSUPPRESSION
     Dosage: TRIAL DISCONTINUED
     Route: 048
  5. TACROLIMUS [Suspect]
     Indication: IMMUNOSUPPRESSION
     Dosage: TRIAL DISCONTINUED
     Route: 048

REACTIONS (8)
  - ANAEMIA [None]
  - ANTIBODY TEST POSITIVE [None]
  - DIARRHOEA [None]
  - HEPATIC ENZYME INCREASED [None]
  - HERNIA [None]
  - LEUKOPENIA [None]
  - MOUTH ULCERATION [None]
  - TRANSPLANT FAILURE [None]
